FAERS Safety Report 6852837-7 (Version None)
Quarter: 2010Q3

REPORT INFORMATION
  Report Type: 
  Country: None (occurrence: None)
  Receive Date: 20100717
  Receipt Date: 20071129
  Transmission Date: 20110219
  Serious: No
  Sender: FDA-Public Use
  Company Number: US-PFIZER INC-2007100242

PATIENT
  Sex: Male
  Weight: 77.3 kg

DRUGS (6)
  1. CHANTIX [Suspect]
     Indication: SMOKING CESSATION THERAPY
     Dates: start: 20071114
  2. MOMETASONE FUROATE [Concomitant]
     Dates: start: 20050101
  3. ALBUTEROL [Concomitant]
     Dates: start: 20030101
  4. IPRATROPIUM BROMIDE [Concomitant]
     Dates: start: 20050601
  5. HYDROCODONE [Concomitant]
     Dates: start: 20030101
  6. DIAZEPAM [Concomitant]
     Dates: start: 20030101

REACTIONS (4)
  - FLATULENCE [None]
  - HEADACHE [None]
  - NAUSEA [None]
  - NIGHTMARE [None]
